FAERS Safety Report 25826108 (Version 1)
Quarter: 2025Q3

REPORT INFORMATION
  Report Type: Other
  Country: US (occurrence: US)
  Receive Date: 20250919
  Receipt Date: 20250919
  Transmission Date: 20251021
  Serious: Yes (Other)
  Sender: SERVIER
  Company Number: US-SERVIER-S25013346

PATIENT

DRUGS (1)
  1. PEGASPARGASE [Suspect]
     Active Substance: PEGASPARGASE
     Indication: T-cell type acute leukaemia
     Route: 065

REACTIONS (4)
  - Cerebral thrombosis [Recovered/Resolved]
  - Cerebral venous thrombosis [Recovered/Resolved]
  - Haemorrhagic infarction [Recovered/Resolved]
  - Generalised tonic-clonic seizure [Recovered/Resolved]
